FAERS Safety Report 21093580 (Version 1)
Quarter: 2022Q3

REPORT INFORMATION
  Report Type: Spontaneous
  Country: US (occurrence: US)
  Receive Date: 20220718
  Receipt Date: 20220718
  Transmission Date: 20221027
  Serious: No
  Sender: FDA-Public Use
  Company Number: US-APOTEX-2021AP042330

PATIENT
  Sex: Female

DRUGS (1)
  1. RISEDRONATE SODIUM [Suspect]
     Active Substance: RISEDRONATE SODIUM
     Indication: Product used for unknown indication
     Dosage: 1 DOSAGE FORM, Q.WK.
     Route: 065
     Dates: start: 202103, end: 202108

REACTIONS (2)
  - Product substitution issue [Unknown]
  - Back pain [Unknown]

NARRATIVE: CASE EVENT DATE: 20210101
